FAERS Safety Report 23521997 (Version 5)
Quarter: 2024Q3

REPORT INFORMATION
  Report Type: Spontaneous
  Country: JP (occurrence: JP)
  Receive Date: 20240214
  Receipt Date: 20240708
  Transmission Date: 20241016
  Serious: Yes (Death, Hospitalization, Other)
  Sender: MERCK
  Company Number: JP-MSD-M2024-05266

PATIENT
  Age: 73 Year
  Sex: Female

DRUGS (2)
  1. KEYTRUDA [Suspect]
     Active Substance: PEMBROLIZUMAB
     Indication: Uterine cancer
     Dosage: 200 MILLIGRAM, Q3W
     Route: 041
     Dates: start: 20231207
  2. LENVATINIB MESYLATE [Suspect]
     Active Substance: LENVATINIB MESYLATE
     Indication: Uterine cancer
     Dosage: 10 MILLIGRAM, QD
     Route: 048
     Dates: start: 20231211, end: 202402

REACTIONS (6)
  - Malignant neoplasm progression [Fatal]
  - Osteomyelitis [Not Recovered/Not Resolved]
  - Duodenal perforation [Unknown]
  - Hypothyroidism [Unknown]
  - Urethritis [Unknown]
  - Off label use [Unknown]

NARRATIVE: CASE EVENT DATE: 20231207
